FAERS Safety Report 18789457 (Version 2)
Quarter: 2021Q1

REPORT INFORMATION
  Report Type: Other
  Country: US (occurrence: US)
  Receive Date: 20210125
  Receipt Date: 20210127
  Transmission Date: 20210419
  Serious: Yes (Other)
  Sender: FDA-Public Use
  Company Number: US-B.BRAUN MEDICAL INC.-2105800

PATIENT
  Age: 1 Day
  Sex: Male

DRUGS (1)
  1. LACTATED RINGERS AND DEXTROSE SOLUTION [Suspect]
     Active Substance: CALCIUM CHLORIDE\DEXTROSE\DEXTROSE MONOHYDRATE\POTASSIUM CHLORIDE\SODIUM CHLORIDE\SODIUM LACTATE
     Indication: DRUG THERAPY
     Route: 042

REACTIONS (3)
  - Apnoea [None]
  - Seizure [None]
  - Blood sodium [None]
